FAERS Safety Report 7713270-9 (Version None)
Quarter: 2011Q3

REPORT INFORMATION
  Report Type: 
  Country: None (occurrence: None)
  Receive Date: 20110826
  Receipt Date: 20110819
  Transmission Date: 20111222
  Serious: Yes (Death, Life-Threatening, Other)
  Sender: FDA-Public Use
  Company Number: JP-BAYER-2011-054534

PATIENT
  Age: 70 Year
  Sex: Male
  Weight: 67 kg

DRUGS (13)
  1. MEXITIL [Concomitant]
     Route: 065
  2. FOSRENOL [Concomitant]
     Dosage: UNK
     Route: 048
  3. PREDNISOLONE [Concomitant]
     Route: 065
  4. CARVEDILOL [Concomitant]
     Route: 048
  5. CALCIUM CARBONATE [Concomitant]
     Dosage: UNK
     Route: 048
  6. MAGNEVIST [Suspect]
     Indication: NUCLEAR MAGNETIC RESONANCE IMAGING
     Dosage: 15 ML, ONCE, AT 2.5 ML/SEC INTO THE ANTECUBITAL VEIN
     Route: 042
     Dates: start: 20110624, end: 20110624
  7. MUCOSTA [Concomitant]
     Route: 048
  8. HALCION [Concomitant]
     Route: 048
  9. SENNOSIDE [Concomitant]
     Route: 048
  10. OMEPRAZON [Concomitant]
     Route: 048
  11. CINACALCET HYDROCHLORIDE [Concomitant]
     Route: 048
  12. TICLOPIDINE HCL [Concomitant]
     Route: 048
  13. ALDOMET [Concomitant]
     Route: 048

REACTIONS (7)
  - INTESTINAL HAEMORRHAGE [None]
  - LOSS OF CONSCIOUSNESS [None]
  - NAUSEA [None]
  - GASTROINTESTINAL NECROSIS [None]
  - ANAPHYLACTIC SHOCK [None]
  - VOMITING [None]
  - CARDIO-RESPIRATORY ARREST [None]
